FAERS Safety Report 9433051 (Version 3)
Quarter: 2013Q3

REPORT INFORMATION
  Report Type: Spontaneous
  Country: FI (occurrence: FI)
  Receive Date: 20130731
  Receipt Date: 20130919
  Transmission Date: 20140515
  Serious: Yes (Disabling, Other)
  Sender: FDA-Public Use
  Company Number: FI-BAYER-2013-090730

PATIENT
  Age: 25 Year
  Sex: Female

DRUGS (2)
  1. YAZ [Suspect]
     Indication: CONTRACEPTION
     Dosage: UNK
     Route: 048
     Dates: start: 20110607, end: 20121227
  2. YAZ [Suspect]
     Indication: ACNE

REACTIONS (18)
  - Cardiac disorder [None]
  - Heart rate increased [None]
  - Nausea [None]
  - Dizziness [None]
  - Asthenia [None]
  - Loss of consciousness [None]
  - Electrocardiogram abnormal [None]
  - Cardiac disorder [None]
  - Cardiac arrest [None]
  - Electrocardiogram abnormal [None]
  - Heart rate decreased [None]
  - Stress [None]
  - Panic reaction [None]
  - Vaginal infection [None]
  - Metabolic disorder [None]
  - Off label use [None]
  - Postural orthostatic tachycardia syndrome [Not Recovered/Not Resolved]
  - Sinus tachycardia [None]
